FAERS Safety Report 10176306 (Version 2)
Quarter: 2014Q4

REPORT INFORMATION
  Report Type: Spontaneous
  Country: US (occurrence: US)
  Receive Date: 20140516
  Receipt Date: 20141002
  Transmission Date: 20150528
  Serious: No
  Sender: FDA-Public Use
  Company Number: US-PFIZER INC-2014133044

PATIENT
  Age: 59 Year
  Sex: Female
  Weight: 77.1 kg

DRUGS (1)
  1. GEODON [Suspect]
     Active Substance: ZIPRASIDONE HYDROCHLORIDE\ZIPRASIDONE MESYLATE
     Indication: SLEEP DISORDER
     Dosage: 50 MG, 2X/DAY
     Dates: start: 2002

REACTIONS (1)
  - Neuropathy peripheral [Unknown]
